FAERS Safety Report 17728298 (Version 2)
Quarter: 2020Q2

REPORT INFORMATION
  Report Type: Report from Study
  Country: BR (occurrence: BR)
  Receive Date: 20200430
  Receipt Date: 20200507
  Transmission Date: 20200714
  Serious: Yes (Death)
  Sender: FDA-Public Use
  Company Number: BR-BAYER-2020-072489

PATIENT
  Age: 53 Year
  Sex: Female

DRUGS (3)
  1. TAMIFLU [Suspect]
     Active Substance: OSELTAMIVIR PHOSPHATE
     Indication: SUSPECTED COVID-19
  2. CHLOROQUINE. [Suspect]
     Active Substance: CHLOROQUINE
     Indication: SUSPECTED COVID-19
  3. AZITROMICINA [Suspect]
     Active Substance: AZITHROMYCIN DIHYDRATE
     Indication: SUSPECTED COVID-19

REACTIONS (1)
  - Death [Fatal]
